FAERS Safety Report 11701391 (Version 2)
Quarter: 2016Q1

REPORT INFORMATION
  Report Type: Spontaneous
  Country: US (occurrence: US)
  Receive Date: 20151105
  Receipt Date: 20160202
  Transmission Date: 20160525
  Serious: Yes (Hospitalization, Other)
  Sender: FDA-Public Use
  Company Number: US-INCYTE CORPORATION-2015IN005675

PATIENT
  Age: 8 Year
  Sex: Female
  Weight: 29.1 kg

DRUGS (19)
  1. SEPTRA [Concomitant]
     Active Substance: SULFAMETHOXAZOLE\TRIMETHOPRIM
     Indication: PRODUCT USED FOR UNKNOWN INDICATION
  2. CHLORHEXIDINE GLUCONATE. [Concomitant]
     Active Substance: CHLORHEXIDINE GLUCONATE
     Indication: PRODUCT USED FOR UNKNOWN INDICATION
  3. MEGACE [Concomitant]
     Active Substance: MEGESTROL ACETATE
     Indication: PRODUCT USED FOR UNKNOWN INDICATION
     Dosage: 40 MG (TAKE 2.5 TABLETS), BID
     Route: 048
  4. VINCRISTINE [Concomitant]
     Active Substance: VINCRISTINE
     Indication: PRODUCT USED FOR UNKNOWN INDICATION
  5. DDAVP [Concomitant]
     Active Substance: DESMOPRESSIN ACETATE
     Indication: CARDIOVASCULAR EVENT PROPHYLAXIS
     Dosage: 0.2 MG (1-3 TABLETS WITHIN 1/2 HOUR OF SLEEP)
  6. TRILEPTAL [Concomitant]
     Active Substance: OXCARBAZEPINE
     Indication: PRODUCT USED FOR UNKNOWN INDICATION
     Dosage: 225 MG, BID
     Route: 048
  7. NORCO [Concomitant]
     Active Substance: ACETAMINOPHEN\HYDROCODONE BITARTRATE
     Indication: PAIN
     Dosage: 1 TABLET Q6H, PRN
     Route: 048
  8. SENNA                              /00142201/ [Concomitant]
     Active Substance: SENNA LEAF
     Indication: PRODUCT USED FOR UNKNOWN INDICATION
     Dosage: 8.6 MG (1 TABLET) QD
     Route: 048
  9. CYPROHEPTADINE. [Concomitant]
     Active Substance: CYPROHEPTADINE
     Indication: PRODUCT USED FOR UNKNOWN INDICATION
  10. PERIDEX                            /00016001/ [Concomitant]
     Indication: PRODUCT USED FOR UNKNOWN INDICATION
     Dosage: 15 ML, BID, IN THE MOUTH OR THROAT
  11. ZOFRAN [Concomitant]
     Active Substance: ONDANSETRON HYDROCHLORIDE
     Indication: NAUSEA
     Dosage: 1 TABLET Q8H, PRN
     Route: 048
  12. JAKAFI [Suspect]
     Active Substance: RUXOLITINIB
     Indication: ACUTE LYMPHOCYTIC LEUKAEMIA
     Dosage: 40 MG, BID
     Route: 048
     Dates: start: 20151027, end: 20151123
  13. JAKAFI [Suspect]
     Active Substance: RUXOLITINIB
     Dosage: 40 MG, BID
     Route: 048
     Dates: start: 20151207
  14. PHENERGAN [Concomitant]
     Active Substance: PROMETHAZINE HYDROCHLORIDE
     Indication: NAUSEA
     Dosage: 12.5 MG (1 TABLET),Q6H, PRN
     Route: 048
  15. KEPPRA [Concomitant]
     Active Substance: LEVETIRACETAM
     Indication: PRODUCT USED FOR UNKNOWN INDICATION
     Dosage: 750 MG, BID
     Route: 048
  16. ZANTAC [Concomitant]
     Active Substance: RANITIDINE HYDROCHLORIDE
     Indication: PRODUCT USED FOR UNKNOWN INDICATION
     Dosage: 75 MG, BID
     Route: 048
  17. EMLA [Concomitant]
     Active Substance: LIDOCAINE\PRILOCAINE
     Indication: PRODUCT USED FOR UNKNOWN INDICATION
     Dosage: APPLY TOPICALLY, PRN, PRIOR TO NEEDLESTICKS, AS DIRECTED
     Route: 061
  18. MIRALAX [Concomitant]
     Active Substance: POLYETHYLENE GLYCOL 3350
     Indication: PRODUCT USED FOR UNKNOWN INDICATION
     Dosage: 17 G, QD, PRN
     Route: 048
  19. BENYLIN [Concomitant]
     Active Substance: DIPHENHYDRAMINE HYDROCHLORIDE
     Indication: PRURITUS
     Dosage: 12.5 MG, QID, PRN
     Route: 048

REACTIONS (10)
  - Anaemia [Unknown]
  - Pyrexia [Unknown]
  - Weight decreased [Unknown]
  - Neutropenia [Recovering/Resolving]
  - Cellulitis [Unknown]
  - Pancytopenia [Unknown]
  - Medication error [Unknown]
  - Thrombocytopenia [Unknown]
  - Drug prescribing error [Unknown]
  - Off label use [Unknown]

NARRATIVE: CASE EVENT DATE: 2015
